FAERS Safety Report 15499378 (Version 1)
Quarter: 2018Q4

REPORT INFORMATION
  Report Type: Spontaneous
  Country: CA (occurrence: CA)
  Receive Date: 20181015
  Receipt Date: 20181015
  Transmission Date: 20190205
  Serious: Yes (Life-Threatening, Hospitalization, Other)
  Sender: FDA-Public Use
  Company Number: CA-GLAXOSMITHKLINE-CA2016200548

PATIENT
  Age: 37 Year
  Sex: Female

DRUGS (14)
  1. DICLOFENAC [Suspect]
     Active Substance: DICLOFENAC
     Indication: PRODUCT USED FOR UNKNOWN INDICATION
     Dosage: 50 MG, TID
     Route: 065
  2. MORPHINE [Interacting]
     Active Substance: MORPHINE
     Indication: PRODUCT USED FOR UNKNOWN INDICATION
     Dosage: 1 MG, UNK
     Route: 037
  3. HYDROMORPHONE [Interacting]
     Active Substance: HYDROMORPHONE
     Indication: PRODUCT USED FOR UNKNOWN INDICATION
     Dosage: 2 MG, QD
     Route: 065
  4. MORPHINE [Interacting]
     Active Substance: MORPHINE
     Dosage: 2 MG, UNK
     Route: 058
  5. FENTANYL. [Interacting]
     Active Substance: FENTANYL
     Indication: PRODUCT USED FOR UNKNOWN INDICATION
     Dosage: 0.01 MG, UNK
     Route: 037
  6. MORPHINE [Interacting]
     Active Substance: MORPHINE
     Dosage: 1 MG, UNK
     Route: 042
  7. MORPHINE [Interacting]
     Active Substance: MORPHINE
     Dosage: 2 MG, UNK
     Route: 058
  8. MORPHINE [Interacting]
     Active Substance: MORPHINE
     Dosage: 1 MG, UNK
     Route: 042
  9. BUPIVACAINE. [Interacting]
     Active Substance: BUPIVACAINE
     Indication: PRODUCT USED FOR UNKNOWN INDICATION
     Dosage: 0.75 %, UNK
     Route: 008
  10. MORPHINE [Interacting]
     Active Substance: MORPHINE
     Dosage: 2 MG, UNK
     Route: 065
  11. MORPHINE [Interacting]
     Active Substance: MORPHINE
     Dosage: 1 MG, UNK
     Route: 037
  12. ACETAMINOPHEN. [Interacting]
     Active Substance: ACETAMINOPHEN
     Indication: PRODUCT USED FOR UNKNOWN INDICATION
     Dosage: 4 DF, QD
     Route: 051
  13. NALOXONE [Interacting]
     Active Substance: NALOXONE
     Indication: PRODUCT USED FOR UNKNOWN INDICATION
     Dosage: 0.28 MG, UNK
     Route: 065
  14. KETOROLAC [Interacting]
     Active Substance: KETOROLAC\KETOROLAC TROMETHAMINE
     Indication: PRODUCT USED FOR UNKNOWN INDICATION
     Dosage: 30 MG, UNK
     Route: 042

REACTIONS (6)
  - Drug interaction [Unknown]
  - Respiratory depression [Unknown]
  - Respiratory rate decreased [Unknown]
  - Maternal exposure during pregnancy [Unknown]
  - Blood pressure increased [Unknown]
  - Unresponsive to stimuli [Unknown]
